FAERS Safety Report 8137333-1 (Version None)
Quarter: 2012Q1

REPORT INFORMATION
  Report Type: 
  Country: None (occurrence: None)
  Receive Date: 20120103
  Receipt Date: 20111003
  Transmission Date: 20120608
  Serious: No
  Sender: FDA-Public Use
  Company Number: AE-2011-001546

PATIENT
  Age: 56 Year
  Sex: Female
  Weight: 63.5036 kg

DRUGS (5)
  1. INCIVEK [Suspect]
     Dosage: 2250 MG (750 MG, 3 IN 1 D)
     Dates: start: 20110912
  2. PEGASYS [Concomitant]
  3. HYDROCHLOROTHIAZIDE [Concomitant]
  4. MULTIVITAMIN [Concomitant]
  5. RIBAVIRIN [Concomitant]

REACTIONS (2)
  - VOMITING [None]
  - NAUSEA [None]
